FAERS Safety Report 18017444 (Version 1)
Quarter: 2020Q3

REPORT INFORMATION
  Report Type: Spontaneous
  Country: JP (occurrence: JP)
  Receive Date: 20200714
  Receipt Date: 20200714
  Transmission Date: 20201103
  Serious: Yes (Hospitalization, Other)
  Sender: FDA-Public Use
  Company Number: JP-AMGEN-JPNSP2020112526

PATIENT
  Age: 65 Year
  Sex: Female

DRUGS (6)
  1. G?LASTA [Suspect]
     Active Substance: PEGFILGRASTIM
     Dosage: UNK
     Route: 058
     Dates: start: 20200615, end: 20200615
  2. CYCLOPHOSPHAMIDE. [Concomitant]
     Active Substance: CYCLOPHOSPHAMIDE
     Indication: BREAST CANCER STAGE II
     Dosage: 1ST COURSE
     Route: 041
     Dates: start: 20200529, end: 20200529
  3. CYCLOPHOSPHAMIDE. [Concomitant]
     Active Substance: CYCLOPHOSPHAMIDE
     Dosage: 2ND COURSE
     Route: 041
     Dates: start: 20200612, end: 20200612
  4. EPIRUBICIN HYDROCHLORIDE. [Concomitant]
     Active Substance: EPIRUBICIN HYDROCHLORIDE
     Dosage: 2ND COURSE
     Route: 041
     Dates: start: 20200612, end: 20200612
  5. EPIRUBICIN HYDROCHLORIDE. [Concomitant]
     Active Substance: EPIRUBICIN HYDROCHLORIDE
     Indication: BREAST CANCER STAGE II
     Dosage: 1ST COURSE
     Route: 041
     Dates: start: 20200529, end: 20200529
  6. G?LASTA [Suspect]
     Active Substance: PEGFILGRASTIM
     Indication: PRODUCT USED FOR UNKNOWN INDICATION
     Dosage: UNK
     Route: 058
     Dates: start: 20200601, end: 20200601

REACTIONS (2)
  - Chemotherapy [Unknown]
  - Aortitis [Recovering/Resolving]

NARRATIVE: CASE EVENT DATE: 20200626
